FAERS Safety Report 9847669 (Version 1)
Quarter: 2014Q1

REPORT INFORMATION
  Report Type: Spontaneous
  Country: US (occurrence: US)
  Receive Date: 20140128
  Receipt Date: 20140128
  Transmission Date: 20141002
  Serious: Yes (Hospitalization)
  Sender: FDA-Public Use
  Company Number: US-BIOGENIDEC-2014BI007800

PATIENT
  Age: 67 Year
  Sex: Female

DRUGS (12)
  1. LISINOPRIL [Concomitant]
  2. MIRALAX [Concomitant]
  3. NEURONTIN [Concomitant]
  4. NORA-BE [Concomitant]
  5. VALIUM [Concomitant]
  6. ZANTAC [Concomitant]
  7. AVONEX [Suspect]
     Indication: MULTIPLE SCLEROSIS
     Route: 030
  8. ALDACTONE [Concomitant]
  9. COREG [Concomitant]
  10. EFFEXOR XR [Concomitant]
  11. LASIX [Concomitant]
  12. LIPITOR [Concomitant]

REACTIONS (1)
  - Upper limb fracture [Unknown]
